FAERS Safety Report 7438153-3 (Version None)
Quarter: 2011Q2

REPORT INFORMATION
  Report Type: 
  Country: None (occurrence: None)
  Receive Date: 20110419
  Receipt Date: 20110404
  Transmission Date: 20111010
  Serious: Yes (Hospitalization)
  Sender: FDA-Public Use
  Company Number: 017439

PATIENT
  Sex: Female
  Weight: 66 kg

DRUGS (11)
  1. FAMOTIDINE [Concomitant]
  2. PREDNISOLONE [Concomitant]
  3. FOLIC ACID [Concomitant]
  4. VALPROATE SODIUM [Concomitant]
  5. INDOMETHACIN [Concomitant]
  6. CIMZIA [Suspect]
     Indication: RHEUMATOID ARTHRITIS
     Dosage: (400 MG 1X/4 WEEKS SUBCUTANEOUS), (400 MG 1X/4 WEEKS SUBCUTANEOUS), (SUBCUTANEOUS), (400 MG 1X/4 WEE
     Route: 058
     Dates: start: 20101027, end: 20110216
  7. CIMZIA [Suspect]
     Indication: RHEUMATOID ARTHRITIS
     Dosage: (400 MG 1X/4 WEEKS SUBCUTANEOUS), (400 MG 1X/4 WEEKS SUBCUTANEOUS), (SUBCUTANEOUS), (400 MG 1X/4 WEE
     Route: 058
     Dates: start: 20091228, end: 20100804
  8. CIMZIA [Suspect]
     Indication: RHEUMATOID ARTHRITIS
     Dosage: (400 MG 1X/4 WEEKS SUBCUTANEOUS), (400 MG 1X/4 WEEKS SUBCUTANEOUS), (SUBCUTANEOUS), (400 MG 1X/4 WEE
     Route: 058
     Dates: start: 20110315
  9. OLMESARTAN MEDOXOMIL [Concomitant]
  10. TEPRENONE [Concomitant]
  11. ZOLPIDEM TARTRATE [Concomitant]

REACTIONS (18)
  - CAROTID ARTERY ANEURYSM [None]
  - BLOOD PRESSURE INCREASED [None]
  - INTRACRANIAL PRESSURE INCREASED [None]
  - HEMIPLEGIA [None]
  - GAZE PALSY [None]
  - VOMITING [None]
  - AORTIC ANEURYSM RUPTURE [None]
  - FALL [None]
  - SUBARACHNOID HAEMORRHAGE [None]
  - DYSARTHRIA [None]
  - CEREBRAL INFARCTION [None]
  - RUPTURED CEREBRAL ANEURYSM [None]
  - URINARY INCONTINENCE [None]
  - FAECAL INCONTINENCE [None]
  - TREATMENT NONCOMPLIANCE [None]
  - ANTICONVULSANT DRUG LEVEL DECREASED [None]
  - CONVULSION [None]
  - MALABSORPTION [None]
